FAERS Safety Report 21585000 (Version 1)
Quarter: 2022Q4

REPORT INFORMATION
  Report Type: Spontaneous
  Country: FR (occurrence: FR)
  Receive Date: 20221111
  Receipt Date: 20221111
  Transmission Date: 20230113
  Serious: Yes (Hospitalization)
  Sender: FDA-Public Use
  Company Number: None

PATIENT
  Age: 55 Year
  Sex: Female
  Weight: 47.4 kg

DRUGS (4)
  1. ENOXAPARIN [Suspect]
     Active Substance: ENOXAPARIN
     Indication: Deep vein thrombosis
     Dosage: ENOXAPARIN SODIUM ((MAMMALS/PIGS/INTESTINAL MUCOSA)),UNIT DOSE: 5000 IU , FREQUENCY TIME : 12 HOURS,
     Dates: start: 20220923, end: 20221015
  2. MYCOPHENOLATE MOFETIL [Suspect]
     Active Substance: MYCOPHENOLATE MOFETIL
     Indication: Systemic lupus erythematosus
     Dosage: MYCOPHENOLATE MOFETIL (HYDROCHLORIDE), UNIT DOSE: 1000 MG , FREQUENCY TIME : 12 HOURS, DURATION : 2
     Dates: start: 20221003, end: 20221005
  3. MYCOPHENOLATE MOFETIL [Suspect]
     Active Substance: MYCOPHENOLATE MOFETIL
     Dosage: MYCOPHENOLATE MOFETIL (HYDROCHLORIDE), UNIT DOSE: 500 MG , FREQUENCY TIME : 12 HOURS, DURATION : 9 D
     Dates: start: 20220923, end: 20221002
  4. PLAQUENIL [Suspect]
     Active Substance: HYDROXYCHLOROQUINE SULFATE
     Indication: Systemic lupus erythematosus
     Dosage: PLAQUENIL 200 MG, UNIT DOSE: 200 MG, FREQUENCY TIME : 12 HOURS
     Dates: start: 20220924

REACTIONS (2)
  - Condition aggravated [Recovering/Resolving]
  - Hepatic cytolysis [Recovering/Resolving]

NARRATIVE: CASE EVENT DATE: 20220930
